FAERS Safety Report 4479471-0 (Version None)
Quarter: 2004Q4

REPORT INFORMATION
  Report Type: 
  Country: None (occurrence: None)
  Receive Date: 20041020
  Receipt Date: 20041008
  Transmission Date: 20050328
  Serious: Yes (Death, Other)
  Sender: FDA-Public Use
  Company Number: JP-BRISTOL-MYERS SQUIBB COMPANY-12725875

PATIENT
  Age: 77 Year
  Sex: Male

DRUGS (6)
  1. TAXOL [Suspect]
     Indication: LUNG NEOPLASM MALIGNANT
     Dosage: ALSO GIVEN ON 01-SEP-2004
     Route: 042
     Dates: start: 20040929, end: 20040929
  2. PARAPLATIN [Suspect]
     Indication: LUNG NEOPLASM MALIGNANT
     Dosage: ALSO GIVEN ON 01-SEP-2004
     Route: 042
     Dates: start: 20040929, end: 20040929
  3. GRANISETRON HCL [Concomitant]
     Indication: PREMEDICATION
     Route: 042
     Dates: start: 20040901, end: 20040929
  4. RANITIDINE HCL [Concomitant]
     Indication: PREMEDICATION
     Route: 042
     Dates: start: 20040901, end: 20040929
  5. DIPHENHYDRAMINE HCL [Concomitant]
     Indication: PREMEDICATION
     Route: 048
     Dates: start: 20040901, end: 20040929
  6. DEXAMETHASONE SODIUM PHOSPHATE [Concomitant]
     Indication: PREMEDICATION
     Route: 042
     Dates: start: 20040901, end: 20040929

REACTIONS (2)
  - NEUTROPENIA [None]
  - SEPSIS [None]
